FAERS Safety Report 4466717-8 (Version None)
Quarter: 2004Q3

REPORT INFORMATION
  Report Type: 
  Country: None (occurrence: None)
  Receive Date: 20040930
  Receipt Date: 20040917
  Transmission Date: 20050211
  Serious: Yes (Life-Threatening)
  Sender: FDA-Public Use
  Company Number: 0002805

PATIENT
  Age: 7 Month
  Sex: Male
  Weight: 7.1 kg

DRUGS (4)
  1. INTRALIPID 20% [Suspect]
     Indication: CONGENITAL MEGACOLON
     Dosage: 60 ML / - DAILY / INTRAVENOUS INF
     Route: 042
     Dates: start: 20040615, end: 20040915
  2. DEXTROSE [Concomitant]
  3. TROPAMINE [Concomitant]
  4. CYSTEINE [Concomitant]

REACTIONS (3)
  - ANAEMIA OF CHRONIC DISEASE [None]
  - BACTERIAL INFECTION [None]
  - CHOLESTASIS [None]
